FAERS Safety Report 17368152 (Version 2)
Quarter: 2020Q1

REPORT INFORMATION
  Report Type: Spontaneous
  Country: US (occurrence: US)
  Receive Date: 20200204
  Receipt Date: 20200312
  Transmission Date: 20200409
  Serious: Yes (Other)
  Sender: FDA-Public Use
  Company Number: US-NOVOPROD-710044

PATIENT
  Age: 66 Year
  Sex: Female
  Weight: 102 kg

DRUGS (3)
  1. NOVOLOG [Suspect]
     Active Substance: INSULIN ASPART
     Indication: TYPE 2 DIABETES MELLITUS
     Dosage: 32 IU, TID
     Route: 058
     Dates: start: 20130821
  2. LEVEMIR [Suspect]
     Active Substance: INSULIN DETEMIR
     Indication: TYPE 2 DIABETES MELLITUS
     Dosage: 32 IU, BID
     Route: 058
     Dates: start: 2010
  3. NOVOLOG [Suspect]
     Active Substance: INSULIN ASPART
     Dosage: 32 IU, TID
     Route: 058
     Dates: start: 20130821

REACTIONS (2)
  - Foot fracture [Not Recovered/Not Resolved]
  - Tendon injury [Not Recovered/Not Resolved]

NARRATIVE: CASE EVENT DATE: 20180608
